FAERS Safety Report 9419029 (Version 1)
Quarter: 2013Q3

REPORT INFORMATION
  Report Type: Report from Study
  Country: RU (occurrence: RU)
  Receive Date: 20130725
  Receipt Date: 20130725
  Transmission Date: 20140515
  Serious: Yes (Death, Hospitalization)
  Sender: FDA-Public Use
  Company Number: PHHO2011RU01982

PATIENT
  Age: 63 Year
  Sex: Male
  Weight: 78 kg

DRUGS (6)
  1. BLINDED ALISKIREN [Suspect]
     Dosage: NO TREATMENT
     Route: 048
     Dates: start: 20100427, end: 20130707
  2. BLINDED ENALAPRIL [Suspect]
     Dosage: NO TREATMENT
     Route: 048
     Dates: start: 20100427, end: 20130707
  3. BLINDED NO TREATMENT RECEIVED [Suspect]
     Dosage: NO TREATMENT
     Route: 048
     Dates: start: 20100427, end: 20130707
  4. DIABETONE [Concomitant]
     Indication: DIABETES MELLITUS
     Dosage: 30 MG, UNK
     Route: 048
     Dates: start: 20130602
  5. PREDNISOLONE [Concomitant]
     Indication: HYPERTHYROIDISM
     Dosage: 30 MG, UNK
     Route: 048
     Dates: start: 20130610, end: 20130704
  6. PREDNISOLONE [Concomitant]
     Dosage: 25 MG, UNK
     Route: 048
     Dates: start: 20130708

REACTIONS (5)
  - Myocardial infarction [Fatal]
  - Atrial fibrillation [Fatal]
  - Angina unstable [Fatal]
  - Hypertensive crisis [Recovered/Resolved]
  - Disease progression [Recovered/Resolved]
